FAERS Safety Report 19908499 (Version 2)
Quarter: 2021Q4

REPORT INFORMATION
  Report Type: Spontaneous
  Country: US (occurrence: US)
  Receive Date: 20211001
  Receipt Date: 20211120
  Transmission Date: 20220303
  Serious: Yes (Other)
  Sender: FDA-Public Use
  Company Number: US-ALXN-A202110837

PATIENT
  Age: 22 Year
  Sex: Female

DRUGS (1)
  1. ULTOMIRIS [Suspect]
     Active Substance: RAVULIZUMAB-CWVZ
     Indication: Paroxysmal nocturnal haemoglobinuria
     Dosage: UNK
     Route: 065
     Dates: start: 2019

REACTIONS (4)
  - Haemolysis [Unknown]
  - Thrombocytopenia [Unknown]
  - Reticulocyte count increased [Unknown]
  - Anaemia [Unknown]
